FAERS Safety Report 6854826-5 (Version None)
Quarter: 2010Q3

REPORT INFORMATION
  Report Type: 
  Country: None (occurrence: None)
  Receive Date: 20100717
  Receipt Date: 20080124
  Transmission Date: 20110219
  Serious: No
  Sender: FDA-Public Use
  Company Number: US-PFIZER INC-2008004505

PATIENT
  Sex: Male
  Weight: 84.09 kg

DRUGS (3)
  1. CHANTIX [Suspect]
     Indication: SMOKING CESSATION THERAPY
     Route: 048
     Dates: start: 20071101, end: 20071201
  2. LISINOPRIL [Concomitant]
     Indication: HYPERTENSION
  3. LEVOTHROID [Concomitant]
     Indication: THYROID DISORDER

REACTIONS (2)
  - ABDOMINAL PAIN UPPER [None]
  - ABNORMAL DREAMS [None]
